FAERS Safety Report 12826565 (Version 1)
Quarter: 2016Q4

REPORT INFORMATION
  Report Type: Spontaneous
  Country: JP (occurrence: JP)
  Receive Date: 20161007
  Receipt Date: 20161007
  Transmission Date: 20170207
  Serious: Yes (Hospitalization)
  Sender: FDA-Public Use
  Company Number: JP-PFIZER INC-2016447213

PATIENT

DRUGS (1)
  1. INLYTA [Suspect]
     Active Substance: AXITINIB
     Indication: RENAL CANCER
     Dosage: 6 MG, DAILY
     Route: 048
     Dates: start: 2015

REACTIONS (3)
  - Cholangitis [Recovering/Resolving]
  - Hypoacusis [Unknown]
  - Palmar-plantar erythrodysaesthesia syndrome [Recovering/Resolving]
